FAERS Safety Report 24427184 (Version 2)
Quarter: 2024Q4

REPORT INFORMATION
  Report Type: Report from Study
  Country: CA (occurrence: CA)
  Receive Date: 20241011
  Receipt Date: 20241121
  Transmission Date: 20250115
  Serious: Yes (Other)
  Sender: MYLAN
  Company Number: CA-MYLANLABS-2024M1091537

PATIENT
  Age: 21 Year
  Sex: Male
  Weight: 50 kg

DRUGS (2)
  1. CLOZAPINE [Suspect]
     Active Substance: CLOZAPINE
     Indication: Schizophrenia
     Dosage: 200 MILLIGRAM, QID (QDS)
     Route: 048
     Dates: start: 20240905, end: 20240922
  2. PALIPERIDONE [Concomitant]
     Active Substance: PALIPERIDONE
     Dosage: 150 MILLIGRAM, 4XW (Q4W)
     Route: 030

REACTIONS (3)
  - Viral myocarditis [Recovered/Resolved]
  - Pericarditis [Unknown]
  - Myocarditis [Recovered/Resolved]

NARRATIVE: CASE EVENT DATE: 20240901
